FAERS Safety Report 4518697-4 (Version None)
Quarter: 2004Q4

REPORT INFORMATION
  Report Type: 
  Country: None (occurrence: None)
  Receive Date: 20041201
  Receipt Date: 20041119
  Transmission Date: 20050328
  Serious: Yes (Hospitalization)
  Sender: FDA-Public Use
  Company Number: HQWYE625022NOV04

PATIENT
  Age: 67 Year
  Sex: Male

DRUGS (9)
  1. GORDARONE           (AMIODARONE) [Suspect]
     Indication: ATRIAL FIBRILLATION
     Dosage: 200 MG 5X PER 1 WK; ORAL
     Route: 048
     Dates: start: 20040401, end: 20041014
  2. PREVISCAN            (FLUINDIONE ) [Suspect]
     Dosage: 20 MG 1X PER 1 DAY, ORAL
     Route: 048
     Dates: end: 20041001
  3. MAXEPA (CITRIC ACID NOS/GLUCOSE/INSULIN/INSULIN HUMAN INJECTION [Concomitant]
  4. FLECAINIDE ACETATE [Concomitant]
  5. AZATHIOPRINE [Concomitant]
  6. NEORAL [Concomitant]
  7. DAFLON (DIOSMIN) [Concomitant]
  8. SOLUPRED         (PREDNISOLONE SODIUM SULFOBENZOATE) [Concomitant]
  9. TAHOR (ATORVASTATIN) [Concomitant]

REACTIONS (7)
  - ALANINE AMINOTRANSFERASE INCREASED [None]
  - ASPARTATE AMINOTRANSFERASE INCREASED [None]
  - BACK PAIN [None]
  - BLOOD ALKALINE PHOSPHATASE INCREASED [None]
  - BLOOD LACTATE DEHYDROGENASE INCREASED [None]
  - HEPATIC ENZYME INCREASED [None]
  - PAIN IN EXTREMITY [None]
